FAERS Safety Report 14260722 (Version 3)
Quarter: 2017Q4

REPORT INFORMATION
  Report Type: Spontaneous
  Country: CA (occurrence: CA)
  Receive Date: 20171207
  Receipt Date: 20171222
  Transmission Date: 20180321
  Serious: Yes (Other)
  Sender: FDA-Public Use
  Company Number: CA-PFIZER INC-2017506826

PATIENT
  Age: 71 Year
  Sex: Female

DRUGS (5)
  1. GABAPENTIN. [Suspect]
     Active Substance: GABAPENTIN
     Indication: NECK PAIN
  2. ATIVAN [Suspect]
     Active Substance: LORAZEPAM
     Indication: INSOMNIA
     Dosage: 1 MG, 1X/DAY (IN THE EVENING AT BEDTIME)
  3. GABAPENTIN. [Suspect]
     Active Substance: GABAPENTIN
     Indication: NEURALGIA
  4. GABAPENTIN. [Suspect]
     Active Substance: GABAPENTIN
     Indication: NEUROPATHY PERIPHERAL
     Dosage: UNK
  5. GABAPENTIN. [Suspect]
     Active Substance: GABAPENTIN
     Indication: NERVE INJURY

REACTIONS (14)
  - Rheumatoid arthritis [Unknown]
  - Heart rate decreased [Unknown]
  - Fatigue [Unknown]
  - Joint swelling [Unknown]
  - Sinus pain [Unknown]
  - Drug ineffective for unapproved indication [Unknown]
  - Feeling abnormal [Unknown]
  - Condition aggravated [Unknown]
  - Peripheral swelling [Unknown]
  - Musculoskeletal stiffness [Unknown]
  - Loss of personal independence in daily activities [Unknown]
  - Cough [Unknown]
  - Depressed mood [Unknown]
  - Abdominal discomfort [Unknown]

NARRATIVE: CASE EVENT DATE: 20171105
